FAERS Safety Report 24907451 (Version 2)
Quarter: 2025Q3

REPORT INFORMATION
  Report Type: Report from Study
  Country: US (occurrence: US)
  Receive Date: 20250130
  Receipt Date: 20250809
  Transmission Date: 20251020
  Serious: Yes (Other)
  Sender: ALEXION PHARMACEUTICALS
  Company Number: US-AstraZeneca-CH-00794357A

PATIENT
  Age: 69 Year
  Sex: Female

DRUGS (1)
  1. CAPIVASERTIB [Suspect]
     Active Substance: CAPIVASERTIB
     Indication: Breast cancer female
     Dosage: 320 MILLIGRAM, BID
     Dates: start: 202404, end: 202501

REACTIONS (3)
  - Syncope [Unknown]
  - Dizziness [Unknown]
  - Fall [Unknown]

NARRATIVE: CASE EVENT DATE: 20240621
